FAERS Safety Report 12579599 (Version 1)
Quarter: 2016Q3

REPORT INFORMATION
  Report Type: Spontaneous
  Country: JP (occurrence: JP)
  Receive Date: 20160721
  Receipt Date: 20160721
  Transmission Date: 20161109
  Serious: Yes (Hospitalization)
  Sender: FDA-Public Use
  Company Number: JP-ASTRAZENECA-2016SE77488

PATIENT
  Age: 60 Year
  Sex: Female

DRUGS (2)
  1. ADRENAL HORMONE [Concomitant]
     Dosage: DOSE UNKNOWN
     Route: 065
  2. NEXIUM [Suspect]
     Active Substance: ESOMEPRAZOLE MAGNESIUM
     Indication: PROPHYLAXIS AGAINST GASTROINTESTINAL ULCER
     Dosage: DOSE UNKNOWN
     Route: 048

REACTIONS (1)
  - Pneumonia [Not Recovered/Not Resolved]
